FAERS Safety Report 4982421-1 (Version None)
Quarter: 2006Q2

REPORT INFORMATION
  Report Type: 
  Country: None (occurrence: None)
  Receive Date: 20060419
  Receipt Date: 20060406
  Transmission Date: 20061013
  Serious: Yes (Other)
  Sender: FDA-Public Use
  Company Number: 2006PV011547

PATIENT
  Age: 75 Year
  Sex: Female
  Weight: 89.3586 kg

DRUGS (13)
  1. BYETTA [Suspect]
     Indication: DIABETES MELLITUS NON-INSULIN-DEPENDENT
     Dosage: 10 MCG; BID; SC;  5 MCG; BID; SC
     Route: 058
     Dates: start: 20050801, end: 20050901
  2. BYETTA [Suspect]
     Indication: DIABETES MELLITUS NON-INSULIN-DEPENDENT
     Dosage: 10 MCG; BID; SC;  5 MCG; BID; SC
     Route: 058
     Dates: start: 20050901
  3. METFORMIN [Concomitant]
  4. LASIX [Concomitant]
  5. NEURONTIN [Concomitant]
  6. THEOPHYLLINE [Concomitant]
  7. DOXAZOSIN [Concomitant]
  8. PLAVIX [Concomitant]
  9. POTASSIUM [Concomitant]
  10. OMEPRAZOLE [Concomitant]
  11. FELODIPINE [Concomitant]
  12. BENZAPRIL [Concomitant]
  13. MONOPRIL [Concomitant]

REACTIONS (8)
  - DECREASED APPETITE [None]
  - ENERGY INCREASED [None]
  - HYPOGLYCAEMIA [None]
  - LOSS OF CONSCIOUSNESS [None]
  - NAUSEA [None]
  - OEDEMA PERIPHERAL [None]
  - PITTING OEDEMA [None]
  - WEIGHT DECREASED [None]
